FAERS Safety Report 18136782 (Version 9)
Quarter: 2021Q1

REPORT INFORMATION
  Report Type: Spontaneous
  Country: CA (occurrence: CA)
  Receive Date: 20200812
  Receipt Date: 20210304
  Transmission Date: 20210419
  Serious: Yes (Death, Hospitalization, Other)
  Sender: FDA-Public Use
  Company Number: CA-CELLTRION INC.-2020CA024982

PATIENT

DRUGS (5)
  1. INFLECTRA [Suspect]
     Active Substance: INFLIXIMAB-DYYB
     Dosage: 10 MG/KG (1000 MG), WEEK 2, 6 AND THEN EVERY 8 WEEKS
     Route: 042
     Dates: start: 20200811
  2. INFLECTRA [Suspect]
     Active Substance: INFLIXIMAB-DYYB
     Dosage: 10 MG/KG (1000 MG), WEEK 2, 6 AND THEN EVERY 8 WEEKS
     Route: 042
     Dates: start: 20200925, end: 20201109
  3. INFLECTRA [Suspect]
     Active Substance: INFLIXIMAB-DYYB
     Dosage: 10 MG/KG (1000 MG), WEEK 2, 6 AND THEN EVERY 8 WEEKS
     Route: 042
     Dates: start: 202008
  4. PREDNISONE. [Concomitant]
     Active Substance: PREDNISONE
     Dosage: 40 MG, TAPERING (TO TAPER AT 20 MG)
  5. INFLECTRA [Suspect]
     Active Substance: INFLIXIMAB-DYYB
     Indication: CROHN^S DISEASE
     Dosage: 970 MG (10 MG/KG), WEEK 0
     Route: 042
     Dates: start: 20200728

REACTIONS (20)
  - Condition aggravated [Unknown]
  - Peripheral swelling [Unknown]
  - Weight decreased [Unknown]
  - Death [Fatal]
  - Gastrointestinal disorder [Unknown]
  - Cardiac arrest [Unknown]
  - Thrombosis [Unknown]
  - Upper gastrointestinal haemorrhage [Unknown]
  - Hypotension [Unknown]
  - Dry skin [Unknown]
  - Malaise [Unknown]
  - Syncope [Unknown]
  - Skin warm [Unknown]
  - Product use issue [Unknown]
  - Gait disturbance [Unknown]
  - Glaucoma [Unknown]
  - Pallor [Unknown]
  - Eating disorder [Unknown]
  - Tachycardia [Unknown]
  - Off label use [Unknown]

NARRATIVE: CASE EVENT DATE: 2020
